FAERS Safety Report 6408860-X (Version None)
Quarter: 2009Q4

REPORT INFORMATION
  Report Type: 
  Country: None (occurrence: None)
  Receive Date: 20091019
  Receipt Date: 20091005
  Transmission Date: 20100525
  Serious: Yes (Hospitalization)
  Sender: FDA-Public Use
  Company Number: POMP-1000735

PATIENT
  Age: 4 Year
  Sex: Male
  Weight: 20 kg

DRUGS (2)
  1. MYOZYME [Suspect]
     Indication: GLYCOGEN STORAGE DISEASE TYPE II
     Dosage: 20 MG/KG, Q2W, INTRAVENOUS
     Route: 042
     Dates: start: 20021025
  2. BACTRIM [Concomitant]

REACTIONS (16)
  - ALANINE AMINOTRANSFERASE INCREASED [None]
  - ASPARTATE AMINOTRANSFERASE INCREASED [None]
  - ATELECTASIS [None]
  - BACTERIAL TEST POSITIVE [None]
  - DIARRHOEA [None]
  - INFUSION RELATED REACTION [None]
  - LYMPHADENOPATHY [None]
  - MUSCULAR WEAKNESS [None]
  - PSEUDOMONAS INFECTION [None]
  - RASH [None]
  - RESPIRATORY FAILURE [None]
  - STAPHYLOCOCCAL INFECTION [None]
  - SUPRAVENTRICULAR TACHYCARDIA [None]
  - SWELLING FACE [None]
  - UPPER RESPIRATORY TRACT INFECTION BACTERIAL [None]
  - URTICARIA [None]
